FAERS Safety Report 4962254-2 (Version None)
Quarter: 2006Q2

REPORT INFORMATION
  Report Type: 
  Country: None (occurrence: None)
  Receive Date: 20060403
  Receipt Date: 20060403
  Transmission Date: 20061013
  Serious: Yes (Hospitalization)
  Sender: FDA-Public Use
  Company Number: None

PATIENT
  Age: 70 Year
  Sex: Female
  Weight: 59.8748 kg

DRUGS (9)
  1. TARCEVA [Suspect]
     Indication: BREAST CANCER METASTATIC
     Dosage: 100 MG
     Dates: start: 20060325, end: 20060330
  2. RAD 001 2.5 MG PO QD (NOVARTIS) [Suspect]
     Indication: BREAST CANCER METASTATIC
     Dosage: 2.5 MG
  3. METFORMIN [Concomitant]
  4. GLIPIZIDE [Concomitant]
  5. ADVAIR DISKUS 100/50 [Concomitant]
  6. ALBUTEROL [Concomitant]
  7. ROXINAL [Concomitant]
  8. DURAGESIC-100 [Concomitant]
  9. LISINOPRIL [Concomitant]

REACTIONS (7)
  - ANOREXIA [None]
  - DEHYDRATION [None]
  - DIARRHOEA [None]
  - DYSPNOEA [None]
  - ORAL INTAKE REDUCED [None]
  - VOMITING [None]
  - WEIGHT DECREASED [None]
